FAERS Safety Report 5366537-6 (Version None)
Quarter: 2007Q2

REPORT INFORMATION
  Report Type: 
  Country: None (occurrence: None)
  Receive Date: 20070619
  Receipt Date: 20070611
  Transmission Date: 20071010
  Serious: Yes (Death)
  Sender: FDA-Public Use
  Company Number: 122

PATIENT
  Sex: Male
  Weight: 72 kg

DRUGS (6)
  1. FAZACLO ODT [Suspect]
     Indication: SCHIZOAFFECTIVE DISORDER
     Dosage: 250MG PO DAILY
     Route: 048
     Dates: start: 20070421, end: 20070429
  2. ATIVAN [Concomitant]
  3. VICODIN [Concomitant]
  4. ASPIRIN [Concomitant]
  5. REMERON [Concomitant]
  6. INSULIN [Concomitant]

REACTIONS (3)
  - COMPLETED SUICIDE [None]
  - INJURY ASPHYXIATION [None]
  - TREATMENT NONCOMPLIANCE [None]
